FAERS Safety Report 16121212 (Version 8)
Quarter: 2020Q4

REPORT INFORMATION
  Report Type: Spontaneous
  Country: JP (occurrence: JP)
  Receive Date: 20190327
  Receipt Date: 20201029
  Transmission Date: 20210113
  Serious: Yes (Hospitalization, Other)
  Sender: FDA-Public Use
  Company Number: JP-BRISTOL-MYERS SQUIBB COMPANY-BMS-2019-019644

PATIENT
  Age: 71 Year
  Sex: Male
  Weight: 51 kg

DRUGS (3)
  1. YERVOY [Suspect]
     Active Substance: IPILIMUMAB
     Indication: METASTATIC RENAL CELL CARCINOMA
     Dosage: UNK
     Route: 041
     Dates: start: 20190130, end: 20190417
  2. OPDIVO [Suspect]
     Active Substance: NIVOLUMAB
     Indication: METASTATIC RENAL CELL CARCINOMA
     Dosage: UNK
     Route: 041
     Dates: start: 20190130, end: 20190417
  3. OPDIVO [Suspect]
     Active Substance: NIVOLUMAB
     Dosage: UNK
     Route: 041
     Dates: start: 2019

REACTIONS (16)
  - Eating disorder [Unknown]
  - Lymphocyte count increased [Unknown]
  - Blood corticotrophin increased [Unknown]
  - Malaise [Unknown]
  - Cortisol decreased [Unknown]
  - Pituitary enlargement [Unknown]
  - Gait inability [Unknown]
  - C-reactive protein increased [Recovering/Resolving]
  - Decreased appetite [Unknown]
  - Dehydration [Unknown]
  - Interstitial lung disease [Unknown]
  - Skin ulcer [Unknown]
  - Blood creatine phosphokinase increased [Recovering/Resolving]
  - Hypopituitarism [Unknown]
  - Rash [Recovered/Resolved]
  - Blood corticotrophin decreased [Unknown]

NARRATIVE: CASE EVENT DATE: 201902
